FAERS Safety Report 25781272 (Version 1)
Quarter: 2025Q3

REPORT INFORMATION
  Report Type: Report from Study
  Country: US (occurrence: US)
  Receive Date: 20250909
  Receipt Date: 20250909
  Transmission Date: 20251021
  Serious: Yes (Other)
  Sender: NEUROCRINE BIOSCIENCES
  Company Number: US-NBI-NBI-US-2348-2025

PATIENT
  Age: 31 Year
  Sex: Female

DRUGS (6)
  1. CRINECERFONT [Suspect]
     Active Substance: CRINECERFONT
     Indication: Adrenogenital syndrome
     Route: 048
     Dates: start: 20250709, end: 202508
  2. HYDROCORTISONE [Concomitant]
     Active Substance: HYDROCORTISONE
  3. HYDROCORTISONE [Concomitant]
     Active Substance: HYDROCORTISONE
  4. FLUDROCORTISONE [Concomitant]
     Active Substance: FLUDROCORTISONE
  5. TOPAMAX [Concomitant]
     Active Substance: TOPIRAMATE
  6. AMPHETAMINE SULFATE [Concomitant]
     Active Substance: AMPHETAMINE SULFATE

REACTIONS (5)
  - Suicidal ideation [Unknown]
  - Heart rate increased [Unknown]
  - Dyspnoea [Unknown]
  - Malaise [Unknown]
  - Anxiety [Recovered/Resolved]
